FAERS Safety Report 4747951-6 (Version None)
Quarter: 2005Q3

REPORT INFORMATION
  Report Type: 
  Country: None (occurrence: None)
  Receive Date: 20050816
  Receipt Date: 20050805
  Transmission Date: 20060218
  Serious: Yes (Other)
  Sender: FDA-Public Use
  Company Number: ATO-05-0283

PATIENT
  Age: 62 Year
  Sex: Female

DRUGS (18)
  1. TRISENOX [Suspect]
     Indication: MULTIPLE MYELOMA
     Dosage: (14 MG, QD), IVI
     Route: 042
     Dates: start: 20050725, end: 20050804
  2. MELPHALAN [Suspect]
  3. ASCORBIC ACID [Suspect]
  4. DEXAMETHASONE [Suspect]
  5. KYTRIL [Concomitant]
  6. MIACALCIN [Concomitant]
  7. CALCIUM GLUCONATE [Concomitant]
  8. AREDIA [Concomitant]
  9. ZOMETA [Concomitant]
  10. PLAVIX [Concomitant]
  11. ASPIRIN [Concomitant]
  12. ACETAMINOPHEN AND HYDROCODONE BITARTRATE [Concomitant]
  13. DURAGESIC-100 [Concomitant]
  14. NEURONTIN [Concomitant]
  15. PEPCID [Concomitant]
  16. CLARITIN [Concomitant]
  17. KLOR-CON [Concomitant]
  18. LISINOPRIL [Concomitant]

REACTIONS (5)
  - CONDITION AGGRAVATED [None]
  - HYPERGLYCAEMIA [None]
  - HYPERTENSION [None]
  - NEUROPATHY PERIPHERAL [None]
  - TREMOR [None]
